FAERS Safety Report 16754841 (Version 1)
Quarter: 2019Q3

REPORT INFORMATION
  Report Type: Report from Study
  Country: AU (occurrence: AU)
  Receive Date: 20190829
  Receipt Date: 20190829
  Transmission Date: 20191005
  Serious: Yes (Other)
  Sender: FDA-Public Use
  Company Number: AU-MYLANLABS-2019M1080969

PATIENT
  Age: 25 Year

DRUGS (5)
  1. PYRAZINAMIDE. [Suspect]
     Active Substance: PYRAZINAMIDE
     Indication: MENINGITIS TUBERCULOUS
     Dosage: RECEIVED FOR 14 MONTHS
     Route: 065
  2. DEXAMETHASONE. [Suspect]
     Active Substance: DEXAMETHASONE
     Indication: MENINGITIS TUBERCULOUS
     Dosage: RECEIVED 4 TIMES DAILY; DOSE WAS REDUCED BY 2MG/WEEK
     Route: 065
  3. ISONIAZID. [Suspect]
     Active Substance: ISONIAZID
     Indication: MENINGITIS TUBERCULOUS
     Dosage: RECEIVED FOR 14 MONTHS
     Route: 065
  4. RIFAMPICIN [Suspect]
     Active Substance: RIFAMPIN
     Indication: MENINGITIS TUBERCULOUS
     Dosage: RECEIVED FOR 14 MONTHS
     Route: 065
  5. ETHAMBUTOL [Suspect]
     Active Substance: ETHAMBUTOL HYDROCHLORIDE
     Indication: MENINGITIS TUBERCULOUS
     Dosage: RECEIVED FOR 14 MONTHS
     Route: 065

REACTIONS (2)
  - Paradoxical drug reaction [Recovered/Resolved]
  - Meningitis tuberculous [Recovered/Resolved]
